FAERS Safety Report 15577812 (Version 1)
Quarter: 2018Q4

REPORT INFORMATION
  Report Type: Spontaneous
  Country: US (occurrence: US)
  Receive Date: 20181102
  Receipt Date: 20181102
  Transmission Date: 20190205
  Serious: Yes (Other)
  Sender: FDA-Public Use
  Company Number: US-AUROBINDO-AUR-APL-2018-052670

PATIENT
  Age: 74 Year
  Sex: Male

DRUGS (9)
  1. ALLOPURINOL. [Concomitant]
     Active Substance: ALLOPURINOL
     Dosage: INCREASED TO 300 MG EVERY MORNING AND 150 MG EVERY EVENING, UNK
     Route: 065
  2. IBRUTINIB [Suspect]
     Active Substance: IBRUTINIB
     Dosage: 420 MILLIGRAM, DAILY
     Route: 065
  3. POTASSIUM CHLORIDE. [Concomitant]
     Active Substance: POTASSIUM CHLORIDE
     Dosage: 10 MILLIEQUIVALENT, DAILY, DOSE WAS DECREASED FROM 20 MEQ DAILY TO 10 MEQ DAILY
     Route: 065
  4. SULFAMETHOXAZOLE AND TRIMETHOPRIM 800/160 MG [Suspect]
     Active Substance: SULFAMETHOXAZOLE\TRIMETHOPRIM
     Indication: POSTOPERATIVE WOUND INFECTION
     Dosage: UNK, EVERY 12 HOURS
     Route: 065
  5. ALLOPURINOL. [Concomitant]
     Active Substance: ALLOPURINOL
     Indication: GOUT
     Dosage: INCREASED TO 300 MG EVERY MORNING AND 150 MG EVERY EVENING
     Route: 065
  6. ALLOPURINOL. [Concomitant]
     Active Substance: ALLOPURINOL
     Dosage: 300 MILLIGRAM, UNK
     Route: 065
  7. RITUXIMAB. [Concomitant]
     Active Substance: RITUXIMAB
     Indication: HYPOKALAEMIA
     Dosage: 375 MILLIGRAM/SQ. METER, MAINTENANCE CHEMOTHERAPY ; CYCLICAL
     Route: 065
  8. IBRUTINIB [Suspect]
     Active Substance: IBRUTINIB
     Indication: LYMPHADENOPATHY
     Dosage: 280 MILLIGRAM, DAILY, REDUCED DOSE OF 280 MG DAILY WITH A GOAL OF TITRATING TO 560 MG DAILY
     Route: 065
  9. POTASSIUM CHLORIDE. [Concomitant]
     Active Substance: POTASSIUM CHLORIDE
     Indication: HYPOKALAEMIA
     Dosage: 20 MILLIEQUIVALENT, DAILY
     Route: 065

REACTIONS (4)
  - Tumour lysis syndrome [Unknown]
  - Hyperuricaemia [Unknown]
  - Hyperkalaemia [Recovering/Resolving]
  - Blood creatinine increased [Recovering/Resolving]
